FAERS Safety Report 24052853 (Version 2)
Quarter: 2024Q3

REPORT INFORMATION
  Report Type: Spontaneous
  Country: JP (occurrence: JP)
  Receive Date: 20240705
  Receipt Date: 20240717
  Transmission Date: 20241016
  Serious: Yes (Hospitalization)
  Sender: JOHNSON AND JOHNSON
  Company Number: JP-MLMSERVICE-20240621-PI109002-00174-1

PATIENT
  Age: 16 Year
  Sex: Male

DRUGS (5)
  1. HALOMONTH [Suspect]
     Active Substance: HALOPERIDOL DECANOATE
     Indication: Restlessness
     Route: 065
  2. HALOPERIDOL DECANOATE [Suspect]
     Active Substance: HALOPERIDOL DECANOATE
     Indication: Restlessness
     Route: 065
  3. METHYLPREDNISOLONE SODIUM SUCCINATE [Concomitant]
     Active Substance: METHYLPREDNISOLONE SODIUM SUCCINATE
     Indication: COVID-19
  4. REMDESIVIR [Concomitant]
     Active Substance: REMDESIVIR
     Indication: COVID-19
  5. TOCILIZUMAB [Concomitant]
     Active Substance: TOCILIZUMAB

REACTIONS (3)
  - Malignant catatonia [Recovering/Resolving]
  - Hypercreatinaemia [Recovering/Resolving]
  - Off label use [Unknown]
